FAERS Safety Report 15077387 (Version 1)
Quarter: 2018Q2

REPORT INFORMATION
  Report Type: Spontaneous
  Country: JP (occurrence: JP)
  Receive Date: 20180627
  Receipt Date: 20180627
  Transmission Date: 20180711
  Serious: Yes (Other)
  Sender: FDA-Public Use
  Company Number: JP-BAYER-2018-116668

PATIENT
  Age: 21 Year
  Sex: Male

DRUGS (1)
  1. CIPROXAN 200 MG [Suspect]
     Active Substance: CIPROFLOXACIN
     Indication: NASOPHARYNGITIS
     Dosage: 200 MG, BID
     Route: 048

REACTIONS (2)
  - Rhabdomyolysis [None]
  - Renal disorder [None]
